FAERS Safety Report 13776792 (Version 1)
Quarter: 2017Q3

REPORT INFORMATION
  Report Type: Spontaneous
  Country: None (occurrence: PL)
  Receive Date: 20170720
  Receipt Date: 20170720
  Transmission Date: 20171127
  Serious: Yes (Other)
  Sender: FDA-Public Use
  Company Number: PL-LABORATOIRE HRA PHARMA-2023562

PATIENT
  Sex: Female

DRUGS (1)
  1. ELLA [Suspect]
     Active Substance: ULIPRISTAL ACETATE
     Route: 048

REACTIONS (4)
  - Abdominal pain [None]
  - Fatigue [None]
  - Osteonecrosis [None]
  - Breast pain [None]
